FAERS Safety Report 9835121 (Version 3)
Quarter: 2014Q2

REPORT INFORMATION
  Report Type: Spontaneous
  Country: US (occurrence: US)
  Receive Date: 20140122
  Receipt Date: 20140424
  Transmission Date: 20141212
  Serious: No
  Sender: FDA-Public Use
  Company Number: US-BRISTOL-MYERS SQUIBB COMPANY-19801067

PATIENT
  Age: 78 Year
  Sex: Male
  Weight: 68.03 kg

DRUGS (1)
  1. ELIQUIS [Suspect]
     Dates: start: 201309

REACTIONS (1)
  - Swelling [Unknown]
